FAERS Safety Report 4877727-0 (Version None)
Quarter: 2006Q1

REPORT INFORMATION
  Report Type: 
  Country: None (occurrence: None)
  Receive Date: 20060109
  Receipt Date: 20051229
  Transmission Date: 20060701
  Serious: Yes (Other)
  Sender: FDA-Public Use
  Company Number: 2005164953

PATIENT
  Age: 55 Year
  Sex: Male
  Weight: 77.1115 kg

DRUGS (4)
  1. ZYRTEC [Suspect]
     Indication: HYPERSENSITIVITY
     Dosage: 10 MG (10 MG, 1 IN 1 D),
     Dates: end: 20051201
  2. ASPIRIN [Suspect]
     Indication: ILL-DEFINED DISORDER
     Dosage: (1 IN 1 D),
  3. NASAREL (FLUNISOLIDE) [Concomitant]
  4. NASONEX [Concomitant]

REACTIONS (2)
  - DEAFNESS NEUROSENSORY [None]
  - OTOTOXICITY [None]
